FAERS Safety Report 22054068 (Version 1)
Quarter: 2023Q1

REPORT INFORMATION
  Report Type: Spontaneous
  Country: US (occurrence: US)
  Receive Date: 20230302
  Receipt Date: 20230302
  Transmission Date: 20230417
  Serious: No
  Sender: FDA-Public Use
  Company Number: US-NOVOPROD-965329

PATIENT
  Age: 61 Year
  Sex: Female

DRUGS (2)
  1. SAXENDA [Suspect]
     Active Substance: LIRAGLUTIDE
     Indication: Weight control
     Dosage: 0.6MG
     Route: 058
     Dates: start: 20220505
  2. SAXENDA [Suspect]
     Active Substance: LIRAGLUTIDE
     Dosage: 1.2 MG
     Route: 058

REACTIONS (7)
  - Decreased appetite [Not Recovered/Not Resolved]
  - Infrequent bowel movements [Not Recovered/Not Resolved]
  - Frustration tolerance decreased [Unknown]
  - Fatigue [Not Recovered/Not Resolved]
  - Fatigue [Not Recovered/Not Resolved]
  - Drug ineffective [Not Recovered/Not Resolved]
  - Inappropriate schedule of product administration [Not Recovered/Not Resolved]

NARRATIVE: CASE EVENT DATE: 20220505
